FAERS Safety Report 5167799-0 (Version None)
Quarter: 2006Q4

REPORT INFORMATION
  Report Type: 
  Country: None (occurrence: None)
  Receive Date: 20061208
  Receipt Date: 20061114
  Transmission Date: 20070319
  Serious: Yes (Hospitalization)
  Sender: FDA-Public Use
  Company Number: PHNU2006DE03756

PATIENT
  Age: 78 Year
  Sex: Female
  Weight: 40 kg

DRUGS (6)
  1. DIOVAN [Suspect]
     Indication: HYPERTENSION
     Dosage: 160 MG/D
     Route: 048
     Dates: start: 20061104, end: 20061115
  2. ACETYLSALICYLIC ACID SRT [Concomitant]
  3. PLAVIX [Concomitant]
  4. DIURETICS [Concomitant]
  5. HMG COA REDUCTASE INHIBITORS [Concomitant]
  6. MORPHINE [Concomitant]

REACTIONS (2)
  - CYSTITIS HAEMORRHAGIC [None]
  - VAGINAL HAEMORRHAGE [None]
